FAERS Safety Report 18860632 (Version 1)
Quarter: 2021Q1

REPORT INFORMATION
  Report Type: Spontaneous
  Country: DE (occurrence: DE)
  Receive Date: 20210208
  Receipt Date: 20210208
  Transmission Date: 20210420
  Serious: Yes (Other)
  Sender: FDA-Public Use
  Company Number: DE-MYLANLABS-2020M1101267

PATIENT
  Age: 44 Year
  Sex: Male

DRUGS (1)
  1. METHOTREXATE. [Suspect]
     Active Substance: METHOTREXATE
     Indication: PSORIATIC ARTHROPATHY
     Dosage: 10 MG, CYCLIC (EVERY 2 WEEKS)
     Route: 058
     Dates: end: 2015

REACTIONS (2)
  - Intestinal haemorrhage [Unknown]
  - Drug ineffective [Unknown]
